FAERS Safety Report 6083971-X (Version None)
Quarter: 2009Q1

REPORT INFORMATION
  Report Type: 
  Country: None (occurrence: None)
  Receive Date: 20090219
  Receipt Date: 20090206
  Transmission Date: 20090719
  Serious: Yes (Other)
  Sender: FDA-Public Use
  Company Number: JP-PFIZER INC-2008091064

PATIENT
  Sex: Male
  Weight: 66 kg

DRUGS (2)
  1. NORVASC [Suspect]
     Indication: HYPERTENSION
     Dosage: 2.5 MG, 2X/DAY
     Route: 048
     Dates: start: 20080826
  2. BLOPRESS [Concomitant]
     Route: 048
     Dates: start: 20071130, end: 20080825

REACTIONS (1)
  - HYPERNATRAEMIA [None]
